FAERS Safety Report 24331799 (Version 1)
Quarter: 2024Q3

REPORT INFORMATION
  Report Type: Report from Study
  Country: US (occurrence: None)
  Receive Date: 20240918
  Receipt Date: 20240918
  Transmission Date: 20241017
  Serious: Yes (Other)
  Sender: ASTRAZENECA
  Company Number: 2024A208056

PATIENT
  Sex: Female

DRUGS (1)
  1. TEZSPIRE [Suspect]
     Active Substance: TEZEPELUMAB-EKKO

REACTIONS (25)
  - Hiatus hernia [Unknown]
  - Deafness [Unknown]
  - Renal cyst [Unknown]
  - Left ventricular dysfunction [Unknown]
  - Cardiac valve disease [Unknown]
  - Supraventricular tachycardia [Unknown]
  - Obstructive sleep apnoea syndrome [Unknown]
  - Insomnia [Unknown]
  - Haematuria [Unknown]
  - Bladder injury [Unknown]
  - Asthma [Unknown]
  - Sjogren^s syndrome [Unknown]
  - Depression [Unknown]
  - Anxiety [Unknown]
  - Psoriatic arthropathy [Unknown]
  - Fibromyalgia [Unknown]
  - Hyperhidrosis [Unknown]
  - Fatigue [Unknown]
  - Weight decreased [Unknown]
  - Dyspnoea [Unknown]
  - Abdominal pain [Unknown]
  - Dysphagia [Unknown]
  - Back pain [Unknown]
  - Arthralgia [Unknown]
  - Contusion [Unknown]
